FAERS Safety Report 6862578-8 (Version None)
Quarter: 2010Q3

REPORT INFORMATION
  Report Type: 
  Country: None (occurrence: None)
  Receive Date: 20100721
  Receipt Date: 20100708
  Transmission Date: 20110219
  Serious: Yes (Other)
  Sender: FDA-Public Use
  Company Number: ES-ELI_LILLY_AND_COMPANY-ES201007003980

PATIENT
  Sex: Female

DRUGS (9)
  1. FORTEO [Suspect]
     Indication: OSTEOPOROSIS
     Dosage: 20 UG, DAILY (1/D)
     Route: 058
     Dates: start: 20090423
  2. SUMADOL [Concomitant]
     Indication: PAIN
     Dosage: UNK, UNKNOWN
     Route: 048
  3. ALDACTONE [Concomitant]
     Indication: LIVER DISORDER
     Dosage: 10 MG, DAILY (1/D)
     Route: 048
  4. HIDROFEROL [Concomitant]
     Dosage: UNK, 1 PHIAL EVERY 15 DAYS
     Route: 048
  5. SUMIAL [Concomitant]
     Dosage: 10 MG, 3/D
     Route: 048
  6. NEUROTIN                           /00949202/ [Concomitant]
     Indication: PAIN
     Dosage: 600 MG, DAILY (1/D)
     Route: 048
  7. NEUROTIN                           /00949202/ [Concomitant]
     Dosage: 300 MG, DAILY (1/D)
     Route: 048
  8. ARCOXIA [Concomitant]
     Dosage: 60 MG, DAILY (1/D)
     Route: 048
  9. ALMAX [Concomitant]
     Dosage: UNK, UNKNOWN
     Route: 048

REACTIONS (3)
  - ABDOMINAL HERNIA [None]
  - INJECTION SITE HAEMATOMA [None]
  - POSTOPERATIVE WOUND INFECTION [None]
